FAERS Safety Report 9679064 (Version 1)
Quarter: 2013Q4

REPORT INFORMATION
  Report Type: Spontaneous
  Country: MX (occurrence: MX)
  Receive Date: 20131108
  Receipt Date: 20131108
  Transmission Date: 20140711
  Serious: Yes (Other)
  Sender: FDA-Public Use
  Company Number: MX-PFIZER INC-2013316494

PATIENT
  Age: 91 Year
  Sex: Female
  Weight: 42 kg

DRUGS (5)
  1. PROVERA [Suspect]
     Dosage: 10 MG, 1X/DAY
     Route: 048
     Dates: start: 20131015
  2. ENALAPRIL [Concomitant]
     Indication: HYPERTENSION
     Dosage: 10 MG, 2X/DAY
  3. METFORMIN [Concomitant]
     Indication: DIABETES MELLITUS
     Dosage: 10 MG, EVERY 4 DAYS
     Route: 048
  4. SINEMET [Concomitant]
     Indication: PARKINSON^S DISEASE
     Dosage: 0.5 DF, 2X/DAY
     Route: 048
  5. LEXOTAN [Concomitant]
     Dosage: 3 MG, UNK

REACTIONS (1)
  - Vaginal haemorrhage [Recovered/Resolved]
